FAERS Safety Report 20795703 (Version 2)
Quarter: 2022Q2

REPORT INFORMATION
  Report Type: Spontaneous
  Country: FR (occurrence: FR)
  Receive Date: 20220506
  Receipt Date: 20220526
  Transmission Date: 20220721
  Serious: Yes (Hospitalization)
  Sender: FDA-Public Use
  Company Number: None

PATIENT
  Age: 86 Year
  Sex: Female

DRUGS (3)
  1. AMIODARONE [Suspect]
     Active Substance: AMIODARONE
     Indication: Atrial fibrillation
     Dosage: 100 MG , DURATION : 27 DAYS , FREQUENCY TIME : 1 DAY
     Route: 048
     Dates: start: 20210801, end: 20210828
  2. DIGOXIN [Suspect]
     Active Substance: DIGOXIN
     Indication: Atrial fibrillation
     Dosage: 67.5 MG , DURATION : 27 DAYS , FREQUENCY TIME : 1 DAY , STRENGTH : 0.125 MG
     Route: 048
     Dates: start: 20210801, end: 20210828
  3. CORGARD [Suspect]
     Active Substance: NADOLOL
     Indication: Myocardial ischaemia
     Dosage: SCORED TABLET , UNIT DOSE : 40 MG , STRENGTH : 80 MG , DURATION : 27 DAYS , FREQUENCY TIME : 1 DAY
     Route: 048
     Dates: start: 20210801, end: 20210828

REACTIONS (5)
  - Cardiogenic shock [Recovered/Resolved]
  - Bradycardia [Recovered/Resolved]
  - Overdose [Recovered/Resolved]
  - Nausea [Recovered/Resolved]
  - Dyspnoea [Recovered/Resolved]

NARRATIVE: CASE EVENT DATE: 20210828
